FAERS Safety Report 5420258-X (Version None)
Quarter: 2007Q3

REPORT INFORMATION
  Report Type: 
  Country: None (occurrence: None)
  Receive Date: 20070815
  Receipt Date: 20070721
  Transmission Date: 20080115
  Serious: Yes (Other)
  Sender: FDA-Public Use
  Company Number: 6036008

PATIENT
  Age: 43 Year
  Sex: Male

DRUGS (7)
  1. PARACETAMOL (500 MG, TABLET) (PARACETAMOL) [Suspect]
     Indication: SUICIDE ATTEMPT
     Dosage: 5000 MG (500 MG, 10 IN 1 ONCE)
     Route: 048
     Dates: start: 20070720
  2. DURAZANIL 6 (6 MG, TABLET) (BROMAZEPAM) [Suspect]
     Indication: SUICIDE ATTEMPT
     Dosage: 120 MG (6 MG, 20 IN 1 ONCE)
     Route: 048
     Dates: start: 20070720
  3. CEFUROXIME (250 MG, TABLET) (CEFUROXIME) [Suspect]
     Indication: SUICIDE ATTEMPT
     Dosage: 3750 MG (250 MG, 15 IN 1 ONCE)
     Route: 048
     Dates: start: 20070720
  4. CITALOPRAM (20 MG, TABLET) (CITALOPRAM) [Suspect]
     Indication: SUICIDE ATTEMPT
     Dosage: 400 MG (20 MG, 20 IN 1 ONCE)
     Route: 048
     Dates: start: 20070720
  5. IBUPROFEN [Suspect]
     Indication: SUICIDE ATTEMPT
     Dosage: 12000 MG (600 MG, 20 IN 1 ONCE)
     Route: 048
     Dates: start: 20070720
  6. MIRTAZAPINE [Suspect]
     Indication: SUICIDE ATTEMPT
     Dosage: 2700 MG (45 MG, 60 IN 1 ONCE)
     Route: 048
     Dates: start: 20070720
  7. AERIUS 5 (5 MG, TABLET) (DESLORATADINE) [Suspect]
     Indication: SUICIDE ATTEMPT
     Dosage: 50 MG (5 MG, 10 IN 1 ONCE)
     Route: 048
     Dates: start: 20070720

REACTIONS (3)
  - MULTIPLE DRUG OVERDOSE INTENTIONAL [None]
  - RESPIRATORY FAILURE [None]
  - SUICIDE ATTEMPT [None]
